FAERS Safety Report 9769028 (Version 1)
Quarter: 2013Q4

REPORT INFORMATION
  Report Type: Spontaneous
  Country: US (occurrence: None)
  Receive Date: 20131217
  Receipt Date: 20131217
  Transmission Date: 20140711
  Serious: Yes (Life-Threatening, Hospitalization)
  Sender: FDA-Public Use
  Company Number: None

PATIENT
  Age: 72 Year
  Sex: Male
  Weight: 61.7 kg

DRUGS (1)
  1. ACETAMINOPHEN 500 MG 227 [Suspect]
     Dosage: OVER 48 HOURS,10/23/13-10/26/13
     Route: 048

REACTIONS (8)
  - Asthenia [None]
  - Fatigue [None]
  - Depressed level of consciousness [None]
  - Renal disorder [None]
  - International normalised ratio increased [None]
  - Blood creatinine increased [None]
  - Hepatorenal syndrome [None]
  - Prothrombin time prolonged [None]
